FAERS Safety Report 21301804 (Version 1)
Quarter: 2022Q3

REPORT INFORMATION
  Report Type: Spontaneous
  Country: US (occurrence: None)
  Receive Date: 20220906
  Receipt Date: 20220906
  Transmission Date: 20221027
  Serious: Yes (Hospitalization)
  Sender: FDA-Public Use
  Company Number: None

PATIENT
  Age: 71 Year
  Sex: Male

DRUGS (1)
  1. RIVAROXABAN [Suspect]
     Active Substance: RIVAROXABAN
     Indication: Portal vein thrombosis
     Dosage: FREQUENCY : DAILY;?
     Route: 048
     Dates: start: 20220607

REACTIONS (5)
  - Abdominal pain upper [None]
  - Vomiting [None]
  - Portal vein thrombosis [None]
  - Condition aggravated [None]
  - Liver function test increased [None]

NARRATIVE: CASE EVENT DATE: 20220810
